FAERS Safety Report 6337705-1 (Version None)
Quarter: 2009Q3

REPORT INFORMATION
  Report Type: 
  Country: None (occurrence: None)
  Receive Date: 20090902
  Receipt Date: 20090821
  Transmission Date: 20100115
  Serious: Yes (Other)
  Sender: FDA-Public Use
  Company Number: AU-ELI_LILLY_AND_COMPANY-AU200908004834

PATIENT
  Age: 22 Year
  Sex: Male

DRUGS (2)
  1. STRATTERA [Suspect]
     Dosage: 120 MG, UNKNOWN
     Route: 065
     Dates: start: 20090101
  2. FLUOXETINE [Concomitant]
     Dosage: UNK, UNKNOWN
     Route: 065

REACTIONS (1)
  - PSYCHOTIC BEHAVIOUR [None]
